FAERS Safety Report 4356819-9 (Version None)
Quarter: 2004Q2

REPORT INFORMATION
  Report Type: 
  Country: None (occurrence: None)
  Receive Date: 20040507
  Receipt Date: 20040426
  Transmission Date: 20050107
  Serious: Yes (Other)
  Sender: FDA-Public Use
  Company Number: DE-JNJFOC-20040405783

PATIENT
  Age: 14 Year
  Sex: Male
  Weight: 41 kg

DRUGS (5)
  1. REMICADE [Suspect]
     Indication: CROHN'S DISEASE
     Dosage: 200 MG, INTRAVENOUS
     Route: 042
     Dates: start: 20021201, end: 20040424
  2. PENTASA [Concomitant]
  3. IMUREK (AZATHIOPRINE [Concomitant]
  4. MULTAFLO (ESCHERICHIA COLI) [Concomitant]
  5. SALOFALK (AMINOSALICYLIC ACID) [Concomitant]

REACTIONS (1)
  - TYPE IV HYPERSENSITIVITY REACTION [None]
